FAERS Safety Report 4809834-2 (Version None)
Quarter: 2005Q4

REPORT INFORMATION
  Report Type: 
  Country: None (occurrence: None)
  Receive Date: 20051026
  Receipt Date: 20051014
  Transmission Date: 20060501
  Serious: Yes (Hospitalization)
  Sender: FDA-Public Use
  Company Number: US-JNJFOC-20051003595

PATIENT
  Sex: Female
  Weight: 59.88 kg

DRUGS (4)
  1. REMICADE [Suspect]
     Indication: CROHN'S DISEASE
     Route: 042
  2. REMICADE [Suspect]
     Route: 042
  3. CIPRO [Concomitant]
     Indication: CROHN'S DISEASE
     Dosage: ON FOR YEARS
  4. NEXIUM [Concomitant]

REACTIONS (4)
  - ANAEMIA [None]
  - BLOOD CALCIUM ABNORMAL [None]
  - DRUG INEFFECTIVE [None]
  - FISTULA [None]
